FAERS Safety Report 8523293-8 (Version None)
Quarter: 2012Q3

REPORT INFORMATION
  Report Type: 
  Country: None (occurrence: None)
  Receive Date: 20120706
  Receipt Date: 20120627
  Transmission Date: 20120928
  Serious: Yes (Hospitalization)
  Sender: FDA-Public Use
  Company Number: ACO_30589_2012

PATIENT
  Age: 41 Year
  Sex: Male

DRUGS (5)
  1. TYSABRI [Concomitant]
  2. ATENOLOL [Concomitant]
  3. AMPYRA [Suspect]
     Indication: MULTIPLE SCLEROSIS
     Dosage: 10 MG, BID, ORAL
     Route: 048
     Dates: start: 20120508
  4. ASPIRIN [Concomitant]
  5. FLECAINIDE ACETATE [Concomitant]

REACTIONS (2)
  - ATRIAL FLUTTER [None]
  - ATRIAL FIBRILLATION [None]
